FAERS Safety Report 4831210-7 (Version None)
Quarter: 2005Q4

REPORT INFORMATION
  Report Type: 
  Country: None (occurrence: None)
  Receive Date: 20051118
  Receipt Date: 20050830
  Transmission Date: 20060501
  Serious: Yes (Life-Threatening, Hospitalization, Other)
  Sender: FDA-Public Use
  Company Number: 2005GB01679

PATIENT
  Age: 22606 Day
  Sex: Male
  Weight: 73 kg

DRUGS (11)
  1. ATENOLOL [Suspect]
     Indication: MYOCARDIAL ISCHAEMIA
     Dosage: PREVIOUS TO HOSPITAL ADMISSION
     Route: 048
     Dates: end: 20050524
  2. ATENOLOL [Suspect]
     Dosage: PREVIOUS TO HOSPITAL ADMISSION
     Route: 048
     Dates: end: 20050524
  3. ANGIOMAX [Suspect]
     Indication: ACUTE CORONARY SYNDROME
     Dosage: INFUSION RATE 4ML/HR
     Route: 040
     Dates: start: 20050523, end: 20050531
  4. ANGIOMAX [Suspect]
     Route: 041
     Dates: start: 20050523, end: 20050531
  5. INTEGRILIN [Suspect]
     Route: 040
     Dates: start: 20050523, end: 20050524
  6. INTEGRILIN [Suspect]
     Route: 041
     Dates: start: 20050523, end: 20050524
  7. ASPIRIN [Concomitant]
  8. SIMVASTATIN [Concomitant]
  9. RAMIPRIL [Concomitant]
  10. IBUPROFEN [Concomitant]
  11. ACETAMINOPHEN [Concomitant]

REACTIONS (6)
  - ATRIOVENTRICULAR BLOCK [None]
  - ATRIOVENTRICULAR BLOCK COMPLETE [None]
  - BRADYCARDIA [None]
  - HYPOTENSION [None]
  - LOSS OF CONSCIOUSNESS [None]
  - PNEUMONIA [None]
